FAERS Safety Report 9213277 (Version 1)
Quarter: 2013Q2

REPORT INFORMATION
  Report Type: Spontaneous
  Country: US (occurrence: US)
  Receive Date: 20130405
  Receipt Date: 20130405
  Transmission Date: 20140414
  Serious: No
  Sender: FDA-Public Use
  Company Number: US-BAYER-2013-033172

PATIENT
  Sex: Female

DRUGS (5)
  1. AVELOX [Suspect]
     Indication: UPPER RESPIRATORY TRACT INFECTION
     Dosage: 400 MG, QD
     Route: 048
     Dates: start: 20130313, end: 20130314
  2. ALBUTEROL [Concomitant]
  3. LISINOPRIL [Concomitant]
  4. HORMONES NOS [Concomitant]
  5. VITAMINS [Concomitant]

REACTIONS (4)
  - Dizziness [Recovering/Resolving]
  - Nausea [Recovering/Resolving]
  - Muscle spasms [Recovering/Resolving]
  - Confusional state [Recovering/Resolving]
